FAERS Safety Report 8844797 (Version 5)
Quarter: 2012Q4

REPORT INFORMATION
  Report Type: 
  Country: DE (occurrence: JP)
  Receive Date: 20121017
  Receipt Date: 20121206
  Transmission Date: 20130627
  Serious: Yes (Hospitalization)
  Sender: FDA-Public Use
  Company Number: JP-FRI-1000039407

PATIENT
  Age: 72 Year
  Sex: Male

DRUGS (13)
  1. MEMANTINE [Suspect]
     Indication: DEMENTIA ALZHEIMER^S TYPE
     Dosage: 5 mg
     Route: 048
     Dates: start: 20120814, end: 20120820
  2. MEMANTINE [Suspect]
     Dosage: 10 mg
     Route: 048
     Dates: start: 20120821, end: 20120827
  3. MEMANTINE [Suspect]
     Dosage: 15 mg
     Route: 048
     Dates: start: 20120828, end: 20120903
  4. MEMANTINE [Suspect]
     Indication: DEMENTIA ALZHEIMER^S TYPE
     Dosage: 20 mg
     Route: 048
     Dates: start: 20120904, end: 20120924
  5. ARICEPT [Concomitant]
     Indication: DEMENTIA ALZHEIMER^S TYPE
     Dosage: 5 mg
     Route: 048
     Dates: start: 20120228
  6. COVERSYL [Concomitant]
     Indication: HYPERTENSION
     Dosage: 4 mg
     Route: 048
  7. PLAVIX [Concomitant]
     Indication: CEREBRAL INFARCTION
     Dosage: 75 mg
     Route: 048
  8. LIPITOR [Concomitant]
     Indication: HYPERLIPIDAEMIA
     Dosage: 10 mg
     Route: 048
  9. AMARYL [Concomitant]
     Indication: DIABETES MELLITUS
     Dosage: 1.5 mg
     Route: 048
  10. NESINA [Concomitant]
     Indication: DIABETES MELLITUS
     Dosage: 25 mg
     Route: 048
  11. GLYCORAN [Concomitant]
     Indication: DIABETES MELLITUS
     Dosage: 750 mg
     Route: 048
  12. MAGLAX [Concomitant]
     Indication: CONSTIPATION
     Dosage: 990 mg
     Route: 048
  13. LAXOBERON [Concomitant]
     Indication: CONSTIPATION
     Route: 048

REACTIONS (1)
  - Blood creatine phosphokinase increased [Recovered/Resolved]
